FAERS Safety Report 9792183 (Version 1)
Quarter: 2013Q4

REPORT INFORMATION
  Report Type: Spontaneous
  Country: US (occurrence: None)
  Receive Date: 20131231
  Receipt Date: 20131231
  Transmission Date: 20140711
  Serious: Yes (Life-Threatening, Hospitalization, Disabling, Other)
  Sender: FDA-Public Use
  Company Number: None

PATIENT
  Age: 21 Year
  Sex: Male
  Weight: 81.65 kg

DRUGS (1)
  1. MEFLOQUINE [Suspect]

REACTIONS (7)
  - Affective disorder [None]
  - Anger [None]
  - Insomnia [None]
  - Hallucinations, mixed [None]
  - Grand mal convulsion [None]
  - Suicidal ideation [None]
  - Alcohol use [None]
